FAERS Safety Report 18648004 (Version 1)
Quarter: 2020Q4

REPORT INFORMATION
  Report Type: Spontaneous
  Country: RU (occurrence: RU)
  Receive Date: 20201222
  Receipt Date: 20201222
  Transmission Date: 20210114
  Serious: Yes (Life-Threatening)
  Sender: FDA-Public Use
  Company Number: RU-MERZ PHARMACEUTICALS GMBH-20-04666

PATIENT
  Age: 32 Year
  Sex: Female

DRUGS (1)
  1. XEOMIN [Suspect]
     Active Substance: INCOBOTULINUMTOXINA
     Indication: MYOFASCIAL PAIN SYNDROME
     Route: 030
     Dates: start: 20171226, end: 20171226

REACTIONS (2)
  - Poisoning [Not Recovered/Not Resolved]
  - Off label use [Unknown]

NARRATIVE: CASE EVENT DATE: 2017
